FAERS Safety Report 11967331 (Version 2)
Quarter: 2016Q1

REPORT INFORMATION
  Report Type: Report from Study
  Country: CH (occurrence: CH)
  Receive Date: 20160127
  Receipt Date: 20160210
  Transmission Date: 20160526
  Serious: Yes (Hospitalization)
  Sender: FDA-Public Use
  Company Number: CH-ABBVIE-16P-151-1543688-00

PATIENT
  Sex: Female

DRUGS (1)
  1. DUODOPA [Suspect]
     Active Substance: CARBIDOPA\LEVODOPA
     Indication: PARKINSON^S DISEASE
     Dosage: MD: 5ML ,CD DAY: 3ML, CD NIGHT:1.4ML/H, ED: 1.6ML-24 HOUR THERAPY
     Route: 050
     Dates: start: 20120611

REACTIONS (4)
  - Small intestinal perforation [Unknown]
  - General physical health deterioration [Unknown]
  - Pain [Unknown]
  - Complication of device insertion [Unknown]
